FAERS Safety Report 15748969 (Version 2)
Quarter: 2019Q1

REPORT INFORMATION
  Report Type: Spontaneous
  Country: IT (occurrence: IT)
  Receive Date: 20181221
  Receipt Date: 20190305
  Transmission Date: 20190417
  Serious: Yes (Other)
  Sender: FDA-Public Use
  Company Number: IT-SUN PHARMACEUTICAL INDUSTRIES LTD-2018RR-193739

PATIENT
  Age: 76 Year
  Sex: Male

DRUGS (7)
  1. TEMOZOLOMIDE. [Suspect]
     Active Substance: TEMOZOLOMIDE
     Indication: PERIPHERAL T-CELL LYMPHOMA UNSPECIFIED
     Dosage: 100 MG/MS, 6 CYCLES AND 2 FURTHER CYCLES, DAY 1-5
     Route: 048
  2. METHOTREXATE. [Suspect]
     Active Substance: METHOTREXATE
     Indication: DIFFUSE LARGE B-CELL LYMPHOMA
     Dosage: 3 DOSAGE FORM, (3 G/MS ON DAY 1, 10 AND 20)
     Route: 042
  3. CYTARABINE. [Suspect]
     Active Substance: CYTARABINE
     Indication: PERIPHERAL T-CELL LYMPHOMA UNSPECIFIED
     Dosage: 50 MG,UNK
     Route: 037
  4. METHOTREXATE. [Suspect]
     Active Substance: METHOTREXATE
     Indication: PERIPHERAL T-CELL LYMPHOMA UNSPECIFIED
     Dosage: (3 G/MS ON DAY 1) , MONTHLY
     Route: 037
  5. DEXAMETHASONE. [Suspect]
     Active Substance: DEXAMETHASONE
     Indication: PREMEDICATION
     Dosage: (TABLET)
     Route: 048
  6. TEMOZOLOMIDE. [Suspect]
     Active Substance: TEMOZOLOMIDE
     Indication: PERIPHERAL T-CELL LYMPHOMA UNSPECIFIED
     Dosage: 100 MG/MS D 1-5
     Route: 048
  7. TEMOZOLOMIDE. [Suspect]
     Active Substance: TEMOZOLOMIDE
     Dosage: (MAINTENANCE : 100 MG/MS, ON DAYS 1-5, EVERY MONTH)
     Route: 065

REACTIONS (3)
  - Renal failure [Recovered/Resolved]
  - Steroid diabetes [Recovered/Resolved]
  - Product use in unapproved indication [Unknown]
